FAERS Safety Report 7645286-5 (Version None)
Quarter: 2011Q3

REPORT INFORMATION
  Report Type: 
  Country: None (occurrence: None)
  Receive Date: 20110729
  Receipt Date: 20110720
  Transmission Date: 20111222
  Serious: Yes (Other)
  Sender: FDA-Public Use
  Company Number: US-AMGEN-USASP2011036904

PATIENT
  Age: 85 Year
  Sex: Female

DRUGS (8)
  1. PROLIA [Suspect]
     Indication: OSTEOPOROSIS POSTMENOPAUSAL
     Dosage: 60 MG, Q6MO
     Dates: start: 20110101
  2. CALCIUM ACETATE [Concomitant]
     Dosage: UNK
  3. ZETIA [Concomitant]
     Dosage: UNK
  4. NEXIUM [Concomitant]
     Dosage: UNK
  5. COQ10 [Concomitant]
     Dosage: UNK
  6. MAGNESIUM [Concomitant]
     Dosage: UNK
  7. IBUPROFEN (ADVIL) [Concomitant]
     Dosage: UNK
     Dates: end: 20110701
  8. VITAMIN D [Concomitant]
     Dosage: UNK

REACTIONS (4)
  - HYPERTENSION [None]
  - FALL [None]
  - RENAL IMPAIRMENT [None]
  - CYSTITIS [None]
